FAERS Safety Report 14583906 (Version 3)
Quarter: 2019Q1

REPORT INFORMATION
  Report Type: Spontaneous
  Country: GR (occurrence: GR)
  Receive Date: 20180228
  Receipt Date: 20190222
  Transmission Date: 20190417
  Serious: Yes (Other)
  Sender: FDA-Public Use
  Company Number: GR-GLAXOSMITHKLINE-GR2018028672

PATIENT
  Age: 49 Year
  Sex: Male
  Weight: 107 kg

DRUGS (19)
  1. ROCURONIUM [Suspect]
     Active Substance: ROCURONIUM BROMIDE
     Indication: BRONCHOSPASM
     Dosage: 70 MG, UNK
     Route: 065
  2. ROCURONIUM [Suspect]
     Active Substance: ROCURONIUM BROMIDE
     Indication: INDUCTION OF ANAESTHESIA
  3. ADRENALINE [Concomitant]
     Active Substance: EPINEPHRINE
     Indication: WHEEZING
     Dosage: 3 MG, UNK
     Route: 042
  4. PROPOFOL. [Suspect]
     Active Substance: PROPOFOL
     Indication: INDUCTION OF ANAESTHESIA
     Dosage: 200 MG, UNK
     Route: 065
  5. FENTANYL CITRATE. [Suspect]
     Active Substance: FENTANYL CITRATE
     Indication: INDUCTION OF ANAESTHESIA
     Dosage: DOSAGE FORM: SOLUTION
     Route: 042
  6. DIMETINDENE MALEATE [Concomitant]
     Active Substance: DIMETHINDENE MALEATE
     Indication: PRODUCT USED FOR UNKNOWN INDICATION
     Dosage: UNK
     Route: 042
  7. SALBUTAMOL SULPHATE [Concomitant]
     Active Substance: ALBUTEROL SULFATE
     Indication: ANAESTHETIC PREMEDICATION
     Dosage: 1 H BEFORE SURGERY
     Route: 055
  8. LIDOCAINE. [Suspect]
     Active Substance: LIDOCAINE
     Indication: INDUCTION OF ANAESTHESIA
     Dosage: 100 MG, UNK
     Route: 065
  9. MIDAZOLAM [Suspect]
     Active Substance: MIDAZOLAM HYDROCHLORIDE
     Indication: MAINTENANCE OF ANAESTHESIA
     Dosage: 2 MG, UNK
     Route: 042
  10. HYDROCORTISONE. [Concomitant]
     Active Substance: HYDROCORTISONE
     Indication: PRODUCT USED FOR UNKNOWN INDICATION
     Dosage: 200 MG, UNK
     Route: 065
  11. DIAZEPAM. [Concomitant]
     Active Substance: DIAZEPAM
     Indication: ANAESTHETIC PREMEDICATION
     Dosage: 1 H BEFORE SURGERY
     Route: 048
  12. IPRATROPIUM BROMIDE. [Concomitant]
     Active Substance: IPRATROPIUM BROMIDE
     Indication: ANAESTHETIC PREMEDICATION
     Dosage: UNK
     Route: 065
  13. RANITIDINE. [Suspect]
     Active Substance: RANITIDINE
     Indication: PRODUCT USED FOR UNKNOWN INDICATION
     Dosage: 50 MG, UNK
     Route: 042
  14. SEVOFLURANE. [Suspect]
     Active Substance: SEVOFLURANE
     Indication: MAINTENANCE OF ANAESTHESIA
     Dosage: UNK
     Route: 065
  15. BUDESONIDE. [Concomitant]
     Active Substance: BUDESONIDE
     Indication: ANAESTHETIC PREMEDICATION
     Dosage: 1 H BEFORE SURGERY
     Route: 065
  16. KETAMINE [Suspect]
     Active Substance: KETAMINE
     Dosage: DOSAGE FORM: UNSPECIFIED, TWO BOLUS DOSES
     Route: 042
  17. MAGNESIUM SULFATE. [Suspect]
     Active Substance: MAGNESIUM SULFATE
     Indication: BRONCHOSPASM
     Dosage: 2 G, UNK
     Route: 042
  18. CALCIUM CHLORIDE + POTASSIUM CHLORIDE + SODIUM ACETATE + SODIUM CHLORI [Concomitant]
     Indication: PRODUCT USED FOR UNKNOWN INDICATION
     Dosage: UNK
     Route: 065
  19. KETAMINE [Suspect]
     Active Substance: KETAMINE
     Indication: BRONCHOSPASM
     Dosage: DOSAGE FORM: UNSPECIFIED,CONTINUOUS INFUSION (2MG/KG/H)
     Route: 042

REACTIONS (2)
  - Hypotension [Recovered/Resolved]
  - Hypersensitivity [Recovered/Resolved]
